FAERS Safety Report 9068351 (Version 1)
Quarter: 2013Q1

REPORT INFORMATION
  Report Type: Spontaneous
  Country: US (occurrence: None)
  Receive Date: 20130212
  Receipt Date: 20130212
  Transmission Date: 20140127
  Serious: Yes (Life-Threatening, Other)
  Sender: FDA-Public Use
  Company Number: None

PATIENT
  Age: 56 Year
  Sex: Female
  Weight: 77.11 kg

DRUGS (2)
  1. EFFEXOR [Suspect]
     Dosage: 2 TIMES DAILY  150 MG  PO
     Route: 048
     Dates: start: 20090903, end: 20130101
  2. LYRICA 150 MG HARTKAPSELN [Suspect]
     Dosage: 2 TIMES DAILY  150MG  PO
     Route: 048
     Dates: start: 20090903, end: 20130101

REACTIONS (6)
  - Hypoaesthesia [None]
  - Visual impairment [None]
  - Drug withdrawal syndrome [None]
  - Personality disorder [None]
  - Paranoia [None]
  - Mania [None]
